FAERS Safety Report 13666796 (Version 1)
Quarter: 2017Q2

REPORT INFORMATION
  Report Type: Spontaneous
  Country: US (occurrence: US)
  Receive Date: 20170619
  Receipt Date: 20170619
  Transmission Date: 20170830
  Serious: No
  Sender: FDA-Public Use
  Company Number: US-ROCHE-1552503

PATIENT
  Age: 56 Year
  Sex: Female

DRUGS (2)
  1. XELODA [Suspect]
     Active Substance: CAPECITABINE
     Dosage: 2 TABLETS EVERY 12 HOURS, 4 A DAY TOTAL.
     Route: 065
     Dates: end: 201503
  2. XELODA [Suspect]
     Active Substance: CAPECITABINE
     Indication: BREAST CANCER METASTATIC
     Dosage: 3 TABLETS TWICE A DAY.
     Route: 065
     Dates: start: 201412

REACTIONS (8)
  - Insomnia [Not Recovered/Not Resolved]
  - Skin discolouration [Unknown]
  - Diarrhoea [Not Recovered/Not Resolved]
  - Skin exfoliation [Recovering/Resolving]
  - Skin hyperpigmentation [Not Recovered/Not Resolved]
  - Neoplasm [Not Recovered/Not Resolved]
  - Weight increased [Not Recovered/Not Resolved]
  - Neoplasm progression [Not Recovered/Not Resolved]

NARRATIVE: CASE EVENT DATE: 201503
